FAERS Safety Report 6973949-3 (Version None)
Quarter: 2010Q3

REPORT INFORMATION
  Report Type: 
  Country: None (occurrence: None)
  Receive Date: 20100909
  Receipt Date: 20100830
  Transmission Date: 20110219
  Serious: Yes (Death)
  Sender: FDA-Public Use
  Company Number: GXKR2010SE09898

PATIENT
  Age: 33 Year
  Sex: Male

DRUGS (6)
  1. DIAZEPAM (NGX) [Suspect]
     Route: 065
  2. MORPHINE (NGX) [Suspect]
     Route: 065
  3. FLUNITRAZEPAM (NGX) [Suspect]
     Route: 065
  4. MIRTAZAPINE [Suspect]
     Route: 065
  5. PROPIOMAZINE [Suspect]
     Route: 065
  6. ALCOHOL [Suspect]

REACTIONS (1)
  - DEATH [None]
